FAERS Safety Report 5866475-6 (Version None)
Quarter: 2008Q3

REPORT INFORMATION
  Report Type: 
  Country: None (occurrence: None)
  Receive Date: 20080902
  Receipt Date: 20080829
  Transmission Date: 20090109
  Serious: Yes (Death, Other)
  Sender: FDA-Public Use
  Company Number: PHHY2008BR19535

PATIENT
  Age: 88 Year
  Sex: Female

DRUGS (3)
  1. CODATEN [Suspect]
     Indication: EXOSTOSIS
     Dosage: 1 DF, Q8H
     Route: 048
     Dates: end: 20080804
  2. BIOFENAC [Concomitant]
     Indication: OSTEOARTHRITIS
     Dosage: 1 TAB/DAY
     Route: 048
  3. CRESTOR [Concomitant]
     Dosage: 1 TAB/DAY
     Route: 048

REACTIONS (4)
  - CARDIAC ARREST [None]
  - DYSPHAGIA [None]
  - SWOLLEN TONGUE [None]
  - VOMITING [None]
